FAERS Safety Report 6247876-3 (Version None)
Quarter: 2009Q2

REPORT INFORMATION
  Report Type: 
  Country: None (occurrence: None)
  Receive Date: 20090626
  Receipt Date: 20090617
  Transmission Date: 20091009
  Serious: Yes (Other)
  Sender: FDA-Public Use
  Company Number: JP-ABBOTT-09P-087-0581131-00

PATIENT
  Age: 44 Year
  Sex: Female

DRUGS (2)
  1. LEUPRORELIN DEPOT [Suspect]
     Indication: BREAST CANCER
     Route: 058
     Dates: start: 20070730
  2. TAMOXIFEN CITRATE [Concomitant]
     Indication: BREAST CANCER

REACTIONS (1)
  - BREAST CANCER [None]
